FAERS Safety Report 4694176-9 (Version None)
Quarter: 2005Q2

REPORT INFORMATION
  Report Type: 
  Country: None (occurrence: None)
  Receive Date: 20050616
  Receipt Date: 20050616
  Transmission Date: 20051028
  Serious: Yes (Other)
  Sender: FDA-Public Use
  Company Number: None

PATIENT
  Sex: Female
  Weight: 47.1741 kg

DRUGS (4)
  1. CITALOPRAM 20 MG IVAX PHARMACEUTIALS [Suspect]
     Indication: ANXIETY
     Dosage: 20 MG DAILY PO
     Route: 048
  2. CITALOPRAM 20 MG IVAX PHARMACEUTIALS [Suspect]
     Indication: DEPRESSION
     Dosage: 20 MG DAILY PO
     Route: 048
  3. CITALOPRAM 20 MG IVAX PHARMACEUTIALS [Suspect]
     Indication: ANXIETY
     Dosage: 20 MG DAILY PO
     Route: 048
  4. CITALOPRAM 20 MG IVAX PHARMACEUTIALS [Suspect]
     Indication: DEPRESSION
     Dosage: 20 MG DAILY PO
     Route: 048

REACTIONS (5)
  - ANXIETY [None]
  - DEPRESSION [None]
  - DIZZINESS [None]
  - DRUG WITHDRAWAL SYNDROME [None]
  - THERAPEUTIC RESPONSE UNEXPECTED WITH DRUG SUBSTITUTION [None]
